FAERS Safety Report 6114930-6 (Version None)
Quarter: 2009Q1

REPORT INFORMATION
  Report Type: 
  Country: None (occurrence: None)
  Receive Date: 20090313
  Receipt Date: 20090304
  Transmission Date: 20090719
  Serious: Yes (Disabling)
  Sender: FDA-Public Use
  Company Number: NL-ASTRAZENECA-2009AC00369

PATIENT
  Age: 68 Year
  Sex: Female
  Weight: 99 kg

DRUGS (11)
  1. ARIMIDEX [Suspect]
     Indication: BREAST CANCER
     Route: 048
     Dates: start: 20080501
  2. NITROFURANTOINE [Interacting]
     Indication: CYSTITIS
     Dosage: 4 X 50MG
     Dates: start: 20090105, end: 20090110
  3. DOXAZOSIN MESYLATE [Concomitant]
     Indication: HYPERTENSION
     Dates: start: 20000101
  4. QUINAPRIL [Concomitant]
     Indication: HYPERTENSION
     Dosage: 2 X 10MG
     Dates: start: 20000101
  5. QUINAPRIL [Concomitant]
     Indication: ILL-DEFINED DISORDER
     Dosage: 2 X 10MG
     Dates: start: 20000101
  6. HYDROCHLOROTHIAZIDE [Concomitant]
     Indication: HYPERTENSION
     Dates: start: 20000101
  7. FUROSEMIDE [Concomitant]
     Indication: ILL-DEFINED DISORDER
     Dates: start: 20000101
  8. GLIMEPIRIDE [Concomitant]
     Indication: DIABETES MELLITUS
     Dosage: 1.5 X 4 MG
     Dates: start: 20000101
  9. METFORMIN HCL [Concomitant]
     Indication: DIABETES MELLITUS
     Dosage: 2 X 1000 MG
     Dates: start: 20000101
  10. SIMVASTATIN [Concomitant]
     Dates: start: 20000101
  11. FLUTICASONE PROPIONATE [Concomitant]
     Dates: start: 20000101

REACTIONS (2)
  - DRUG INTERACTION [None]
  - METABOLIC ENCEPHALOPATHY [None]
